FAERS Safety Report 8486199-9 (Version None)
Quarter: 2012Q3

REPORT INFORMATION
  Report Type: 
  Country: None (occurrence: None)
  Receive Date: 20120703
  Receipt Date: 20120628
  Transmission Date: 20120928
  Serious: Yes (Hospitalization)
  Sender: FDA-Public Use
  Company Number: DK-ELI_LILLY_AND_COMPANY-DK201206007332

PATIENT
  Sex: Male
  Weight: 88 kg

DRUGS (2)
  1. PRASUGREL HYDROCHLORIDE [Suspect]
     Indication: STENT PLACEMENT
     Dosage: 60 MG, SINGLE
     Dates: start: 20111019
  2. PRASUGREL HYDROCHLORIDE [Suspect]
     Dosage: UNK

REACTIONS (1)
  - IN-STENT CORONARY ARTERY RESTENOSIS [None]
